FAERS Safety Report 18388406 (Version 4)
Quarter: 2021Q1

REPORT INFORMATION
  Report Type: Report from Study
  Country: BR (occurrence: BR)
  Receive Date: 20201015
  Receipt Date: 20210303
  Transmission Date: 20210419
  Serious: Yes (Disabling, Other)
  Sender: FDA-Public Use
  Company Number: NVSC2020BR275070

PATIENT
  Sex: Female
  Weight: 88 kg

DRUGS (10)
  1. ETANERCEPT [Suspect]
     Active Substance: ETANERCEPT
     Indication: RHEUMATOID ARTHRITIS
  2. ATENSINA [Concomitant]
     Active Substance: CLONIDINE
     Indication: HYPERTENSION
     Dosage: 1 DF, TID
     Route: 048
     Dates: start: 2010
  3. OLMESARTAN [Concomitant]
     Active Substance: OLMESARTAN
     Indication: HYPERTENSION
     Dosage: 1 DF, QD
     Route: 048
     Dates: start: 2019
  4. ETANERCEPT [Suspect]
     Active Substance: ETANERCEPT
     Indication: ANKYLOSING SPONDYLITIS
     Dosage: 4 INJECTION OF 50 MG, QW
     Route: 065
     Dates: start: 201711, end: 202002
  5. PURAN [Concomitant]
     Active Substance: LEVOTHYROXINE SODIUM
     Indication: HYPOTHYROIDISM
     Dosage: 1 DF, QD  (01 TABLET OF 150 MG)
     Route: 048
     Dates: start: 2010
  6. COSENTYX [Concomitant]
     Active Substance: SECUKINUMAB
     Indication: ANKYLOSING SPONDYLITIS
     Dosage: 1 DF, QW (FORMULATION: PEN)
     Route: 058
     Dates: start: 20200905
  7. ISOSORBIDE. [Concomitant]
     Active Substance: ISOSORBIDE
     Indication: HYPERTENSION
     Dosage: 2 DF, TID
     Route: 048
     Dates: start: 2019
  8. SULFASALAZINA [Concomitant]
     Active Substance: SULFASALAZINE
     Indication: HYPERTENSION
     Dosage: 1 DF, QD
     Route: 048
  9. DITIZEM [Concomitant]
     Indication: HYPERTENSION
     Dosage: 6 DF, QD
     Route: 048
     Dates: start: 2019
  10. PURAN [Concomitant]
     Active Substance: LEVOTHYROXINE SODIUM
     Dosage: 1 DF, QD  (01 TABLET OF 200 MG)
     Route: 048
     Dates: start: 2010

REACTIONS (18)
  - General physical health deterioration [Not Recovered/Not Resolved]
  - Tendonitis [Recovering/Resolving]
  - Gait inability [Recovering/Resolving]
  - Arthralgia [Recovered/Resolved]
  - Erythema [Unknown]
  - Rheumatoid arthritis [Unknown]
  - Spondylitis [Recovering/Resolving]
  - Folliculitis [Recovering/Resolving]
  - Drug ineffective [Recovered/Resolved]
  - Furuncle [Recovering/Resolving]
  - Coccydynia [Recovered/Resolved]
  - Joint swelling [Unknown]
  - Pain [Not Recovered/Not Resolved]
  - Heat cramps [Unknown]
  - Arthralgia [Recovering/Resolving]
  - Neck deformity [Unknown]
  - Eye pruritus [Unknown]
  - Bladder disorder [Unknown]

NARRATIVE: CASE EVENT DATE: 2018
